FAERS Safety Report 21905128 (Version 1)
Quarter: 2023Q1

REPORT INFORMATION
  Report Type: Spontaneous
  Country: AT (occurrence: AT)
  Receive Date: 20230124
  Receipt Date: 20230124
  Transmission Date: 20230417
  Serious: Yes (Other)
  Sender: FDA-Public Use
  Company Number: AT-UCBSA-2023003498

PATIENT
  Age: 2 Year
  Sex: Female

DRUGS (6)
  1. KEPPRA [Suspect]
     Active Substance: LEVETIRACETAM
     Indication: Seizure cluster
     Dosage: 90 MILLIGRAM/KILOGRAM, ONCE DAILY (QD)
     Route: 065
     Dates: start: 202110
  2. TOPIRAMATE [Suspect]
     Active Substance: TOPIRAMATE
     Indication: Seizure cluster
     Dosage: UNK
     Route: 065
     Dates: start: 202210, end: 202212
  3. CARBAMAZEPINE [Concomitant]
     Active Substance: CARBAMAZEPINE
     Indication: Seizure cluster
     Dosage: UNK
     Route: 065
     Dates: start: 202106, end: 202112
  4. CLOBAZAM [Concomitant]
     Active Substance: CLOBAZAM
     Indication: Seizure cluster
     Dosage: UNK
     Route: 065
     Dates: start: 202206
  5. DIACOMIT [Concomitant]
     Active Substance: STIRIPENTOL
     Indication: Seizure cluster
     Dosage: UNK
     Route: 065
     Dates: start: 202212
  6. VALPROIC ACID [Concomitant]
     Active Substance: VALPROIC ACID
     Indication: Seizure cluster
     Dosage: UNK
     Route: 065
     Dates: start: 202206

REACTIONS (4)
  - Seizure [Not Recovered/Not Resolved]
  - Agitation [Recovering/Resolving]
  - Sleep disorder [Unknown]
  - Drug ineffective [Unknown]
